FAERS Safety Report 9150507 (Version 2)
Quarter: 2013Q1

REPORT INFORMATION
  Report Type: Spontaneous
  Country: CO (occurrence: CO)
  Receive Date: 20130308
  Receipt Date: 20130312
  Transmission Date: 20140127
  Serious: Yes (Other)
  Sender: FDA-Public Use
  Company Number: CO-ROCHE-1198607

PATIENT
  Age: 83 Year
  Sex: Female

DRUGS (3)
  1. LUCENTIS [Suspect]
     Indication: DIABETIC RETINAL OEDEMA
     Route: 050
     Dates: start: 20130214
  2. TERRAMYCIN [Concomitant]
  3. OPTIVE LUBRICANT EYE DROPS [Concomitant]

REACTIONS (3)
  - Ulcerative keratitis [Unknown]
  - Endophthalmitis [Unknown]
  - Inappropriate schedule of drug administration [Unknown]
